FAERS Safety Report 26114639 (Version 3)
Quarter: 2025Q4

REPORT INFORMATION
  Report Type: Report from Study
  Country: CA (occurrence: CA)
  Receive Date: 20251202
  Receipt Date: 20251222
  Transmission Date: 20260118
  Serious: Yes (Other)
  Sender: JOHNSON AND JOHNSON
  Company Number: CA-JNJFOC-20251002815

PATIENT
  Age: 71 Year
  Sex: Male
  Weight: 87 kg

DRUGS (4)
  1. REMICADE [Suspect]
     Active Substance: INFLIXIMAB
     Indication: Pityriasis rubra pilaris
     Route: 041
     Dates: start: 20091022
  2. REMICADE [Suspect]
     Active Substance: INFLIXIMAB
     Indication: Unevaluable event
     Route: 041
     Dates: start: 20140828
  3. METFORMIN [Concomitant]
     Active Substance: METFORMIN HYDROCHLORIDE
     Indication: Product used for unknown indication
  4. TELMISARTAN [Concomitant]
     Active Substance: TELMISARTAN
     Indication: Product used for unknown indication

REACTIONS (3)
  - Rib fracture [Unknown]
  - Malignant neoplasm of thorax [Not Recovered/Not Resolved]
  - Limb mass [Unknown]
